FAERS Safety Report 12867840 (Version 3)
Quarter: 2018Q1

REPORT INFORMATION
  Report Type: Spontaneous
  Country: US (occurrence: US)
  Receive Date: 20161020
  Receipt Date: 20180123
  Transmission Date: 20180508
  Serious: No
  Sender: FDA-Public Use
  Company Number: US-AMGEN-USASP2016098875

PATIENT
  Sex: Female

DRUGS (1)
  1. REPATHA [Suspect]
     Active Substance: EVOLOCUMAB
     Indication: HYPERCHOLESTEROLAEMIA
     Dosage: 140 MG, Q2WK
     Route: 058
     Dates: start: 201607

REACTIONS (10)
  - Bone pain [Recovering/Resolving]
  - Eye pruritus [Recovered/Resolved]
  - Eye irritation [Recovering/Resolving]
  - Drug dose omission [Unknown]
  - Arthralgia [Recovering/Resolving]
  - Skin mass [Recovering/Resolving]
  - Weight increased [Recovering/Resolving]
  - Pruritus generalised [Recovering/Resolving]
  - Abdominal distension [Recovering/Resolving]
  - Dysuria [Recovering/Resolving]
